FAERS Safety Report 5826658-8 (Version None)
Quarter: 2008Q3

REPORT INFORMATION
  Report Type: 
  Country: None (occurrence: None)
  Receive Date: 20080730
  Receipt Date: 20080725
  Transmission Date: 20090109
  Serious: Yes (Hospitalization, Other)
  Sender: FDA-Public Use
  Company Number: CN-JNJFOC-20080606115

PATIENT
  Age: 38 Year
  Sex: Male

DRUGS (1)
  1. NIZORAL [Suspect]
     Indication: TINEA PEDIS
     Route: 048

REACTIONS (2)
  - HEPATIC CYST [None]
  - LIVER INJURY [None]
